FAERS Safety Report 13982972 (Version 1)
Quarter: 2017Q3

REPORT INFORMATION
  Report Type: Spontaneous
  Country: US (occurrence: US)
  Receive Date: 20170918
  Receipt Date: 20170918
  Transmission Date: 20171128
  Serious: Yes (Hospitalization)
  Sender: FDA-Public Use
  Company Number: US-APOTEX-2017AP018787

PATIENT
  Age: 34 Year
  Sex: Male

DRUGS (15)
  1. RISPERIDONE. [Suspect]
     Active Substance: RISPERIDONE
     Dosage: 2 MG, QD
     Route: 065
     Dates: start: 20160217
  2. PALIPERIDONE. [Concomitant]
     Active Substance: PALIPERIDONE
     Dosage: 156 MG, UNK
     Route: 030
     Dates: start: 20160224
  3. RISPERIDONE. [Suspect]
     Active Substance: RISPERIDONE
     Dosage: 1 MG, QD
     Route: 065
     Dates: start: 20160224, end: 20160226
  4. BENZTROPINE [Concomitant]
     Active Substance: BENZTROPINE
     Dosage: 0.5 MG, BID
     Route: 065
     Dates: start: 20160217, end: 20170226
  5. TRAZODONE HYDROCHLORIDE. [Suspect]
     Active Substance: TRAZODONE HYDROCHLORIDE
     Dosage: 200 UNK, BEDTIME
     Route: 065
     Dates: start: 20160308
  6. DIPHENHYDRAMINE. [Concomitant]
     Active Substance: DIPHENHYDRAMINE
     Indication: INSOMNIA
     Dosage: 50 MG, BEDTIME
     Route: 065
     Dates: start: 20160304
  7. CLONAZEPAM. [Concomitant]
     Active Substance: CLONAZEPAM
     Dosage: 0.5 MG, BID
     Route: 065
     Dates: start: 20160217, end: 20170226
  8. DIPHENHYDRAMINE. [Concomitant]
     Active Substance: DIPHENHYDRAMINE
     Dosage: 25 MG TWO TIMESS/DAY AND 50 MG AT BEDTIME
     Route: 065
     Dates: start: 20170318
  9. PALIPERIDONE. [Concomitant]
     Active Substance: PALIPERIDONE
     Indication: SCHIZOPHRENIA
     Dosage: 234 MG, UNK
     Route: 030
     Dates: start: 20160217
  10. TRAZODONE HYDROCHLORIDE. [Suspect]
     Active Substance: TRAZODONE HYDROCHLORIDE
     Indication: INSOMNIA
     Dosage: 200 MG, BEDTIME
     Route: 065
     Dates: start: 20160217
  11. PALIPERIDONE. [Concomitant]
     Active Substance: PALIPERIDONE
     Dosage: 117 MG, UNK
     Route: 030
     Dates: start: 20160324
  12. PALIPERIDONE. [Concomitant]
     Active Substance: PALIPERIDONE
     Dosage: 117 MG, UNK
     Route: 030
     Dates: start: 20170425
  13. RISPERIDONE. [Suspect]
     Active Substance: RISPERIDONE
     Indication: SCHIZOPHRENIA
     Dosage: 3 MG, QD, BEDTIME
     Route: 048
     Dates: start: 20160128
  14. CLONAZEPAM. [Concomitant]
     Active Substance: CLONAZEPAM
     Indication: ANXIETY
     Dosage: 1 MG, BID
     Route: 065
     Dates: start: 20160210
  15. BENZTROPINE [Concomitant]
     Active Substance: BENZTROPINE
     Indication: EXTRAPYRAMIDAL DISORDER
     Dosage: 1 MG, BID
     Route: 065
     Dates: start: 20160210

REACTIONS (2)
  - Blood prolactin increased [Recovering/Resolving]
  - Galactorrhoea [Recovered/Resolved]

NARRATIVE: CASE EVENT DATE: 20170311
